FAERS Safety Report 7235092-8 (Version None)
Quarter: 2011Q1

REPORT INFORMATION
  Report Type: 
  Country: None (occurrence: None)
  Receive Date: 20110114
  Receipt Date: 20110114
  Transmission Date: 20110831
  Serious: Yes (Life-Threatening)
  Sender: FDA-Public Use
  Company Number: None

PATIENT
  Age: 48 Year
  Sex: Female
  Weight: 77.1115 kg

DRUGS (14)
  1. NOVOLOG FLEXPEN SYRINGE [Concomitant]
  2. POTASSIUM CL [Concomitant]
  3. ALLEGRA [Concomitant]
  4. FLONASE [Concomitant]
  5. LANTUS SOLOSTAR INSULIN PEN [Concomitant]
  6. FUROSEMIDE [Concomitant]
  7. VICTOZA [Suspect]
     Indication: TYPE 2 DIABETES MELLITUS
     Dosage: 1.8MG DAILY SQ
     Dates: start: 20100617, end: 20101101
  8. METFORMIN HCL [Concomitant]
  9. PROTONIX [Concomitant]
  10. COZAAR [Concomitant]
  11. LOVASTATIN [Concomitant]
  12. TRIAMTERENE AND HYDROCHLOROTHIAZIDE [Concomitant]
  13. ALBUTEROL SUL HFA [Concomitant]
  14. NORVASC [Concomitant]

REACTIONS (1)
  - PANCREATITIS [None]
